FAERS Safety Report 7798048 (Version 7)
Quarter: 2012Q4

REPORT INFORMATION
  Report Type: 
  Country: JP (occurrence: JP)
  Receive Date: 20110203
  Receipt Date: 20121228
  Transmission Date: 20130627
  Serious: Yes (Life-Threatening, Hospitalization)
  Sender: FDA-Public Use
  Company Number: JP-B.I. PHARMACEUTICALS,INC./RIDGEFIELD-2011-DE-00748GD

PATIENT
  Sex: Male
  Weight: 51 kg

DRUGS (1)
  1. MOBIC [Suspect]
     Indication: RHEUMATOID ARTHRITIS
     Dosage: 1DF
     Route: 048
     Dates: end: 20090501

REACTIONS (4)
  - Dyspnoea exertional [Not Recovered/Not Resolved]
  - Faeces discoloured [Not Recovered/Not Resolved]
  - Anaemia [Not Recovered/Not Resolved]
  - Ileal stenosis [Not Recovered/Not Resolved]
